FAERS Safety Report 10265971 (Version 1)
Quarter: 2014Q2

REPORT INFORMATION
  Report Type: Spontaneous
  Country: US (occurrence: US)
  Receive Date: 20140627
  Receipt Date: 20140627
  Transmission Date: 20141212
  Serious: No
  Sender: FDA-Public Use
  Company Number: US-GILEAD-2014-0106221

PATIENT
  Sex: Female

DRUGS (4)
  1. SOVALDI [Suspect]
     Indication: HEPATITIS C
     Route: 065
  2. RIBAVIRIN [Interacting]
     Indication: HEPATITIS C
     Route: 065
  3. NOVOCAINE [Interacting]
     Indication: ANAESTHETIC PREMEDICATION
     Route: 065
  4. LIDOCAINE [Interacting]
     Indication: ANAESTHETIC PREMEDICATION
     Route: 065

REACTIONS (2)
  - Drug interaction [Unknown]
  - Anaesthetic complication [Unknown]
